FAERS Safety Report 17088337 (Version 1)
Quarter: 2019Q4

REPORT INFORMATION
  Report Type: Spontaneous
  Country: US (occurrence: US)
  Receive Date: 20191128
  Receipt Date: 20191128
  Transmission Date: 20200122
  Serious: No
  Sender: FDA-Public Use
  Company Number: US-APOTEX-2019AP006725

PATIENT
  Age: 53 Year
  Sex: Female

DRUGS (2)
  1. NICOTINE. [Suspect]
     Active Substance: NICOTINE
     Indication: SMOKING CESSATION THERAPY
     Dosage: 7 MG, QD
     Route: 062
     Dates: start: 20181218
  2. NICOTINE. [Suspect]
     Active Substance: NICOTINE
     Dosage: 7 MG, QD
     Route: 062
     Dates: start: 20181218

REACTIONS (1)
  - Contusion [Not Recovered/Not Resolved]

NARRATIVE: CASE EVENT DATE: 20190115
